FAERS Safety Report 4450949-9 (Version None)
Quarter: 2004Q3

REPORT INFORMATION
  Report Type: 
  Country: None (occurrence: None)
  Receive Date: 20040916
  Receipt Date: 20040106
  Transmission Date: 20050211
  Serious: Yes (Other)
  Sender: FDA-Public Use
  Company Number: US-BRISTOL-MYERS SQUIBB COMPANY-12471553

PATIENT
  Sex: Male
  Weight: 100 kg

DRUGS (7)
  1. STADOL [Suspect]
  2. OXYCODONE HCL + ACETAMINOPHEN [Concomitant]
     Indication: MIGRAINE
     Dosage: DOSING: 5 MG/325 MG EVERY 6 HOURS
     Route: 048
     Dates: start: 20021017
  3. DIHYDROERGOTAMINE MESYLATE [Concomitant]
     Indication: HEADACHE
     Dosage: DOSING: 1 MG/ ML INJECTION
     Route: 030
     Dates: start: 20020602
  4. GABAPENTIN [Concomitant]
  5. GABAPENTIN [Concomitant]
     Route: 048
     Dates: start: 20020205
  6. ATENOLOL [Concomitant]
     Dosage: DOSING: 100MG TAB ONCE DAILY / 50MG TAB TWICE DAILY
  7. INSULIN [Concomitant]
     Dosage: DOSING: 1ML 29G 0.5IN
     Route: 058
     Dates: start: 20011130

REACTIONS (1)
  - DEPENDENCE [None]
